FAERS Safety Report 18845369 (Version 1)
Quarter: 2021Q1

REPORT INFORMATION
  Report Type: Spontaneous
  Country: AU (occurrence: AU)
  Receive Date: 20210204
  Receipt Date: 20210204
  Transmission Date: 20210419
  Serious: Yes (Hospitalization)
  Sender: FDA-Public Use
  Company Number: AU-MYLANLABS-2021M1007133

PATIENT
  Sex: Male

DRUGS (1)
  1. CLOZARIL [Suspect]
     Active Substance: CLOZAPINE
     Indication: SCHIZOPHRENIA
     Dosage: 275 MILLIGRAM
     Route: 048
     Dates: start: 20050303

REACTIONS (6)
  - Dyspnoea [Unknown]
  - Incontinence [Unknown]
  - Fall [Unknown]
  - Vomiting [Unknown]
  - Urosepsis [Unknown]
  - Cough [Unknown]
